FAERS Safety Report 15184850 (Version 1)
Quarter: 2018Q3

REPORT INFORMATION
  Report Type: Spontaneous
  Country: US (occurrence: US)
  Receive Date: 20180723
  Receipt Date: 20180723
  Transmission Date: 20181010
  Serious: No
  Sender: FDA-Public Use
  Company Number: US-AMGEN-USASP2018083096

PATIENT
  Age: 69 Year
  Sex: Female
  Weight: 62.59 kg

DRUGS (1)
  1. REPATHA [Suspect]
     Active Substance: EVOLOCUMAB
     Indication: BLOOD CHOLESTEROL INCREASED
     Dosage: 140 MG/ML, Q2WK
     Route: 065
     Dates: start: 20180215

REACTIONS (5)
  - Peripheral swelling [Unknown]
  - Erythema [Unknown]
  - Oedema mucosal [Unknown]
  - Rash pruritic [Unknown]
  - Injection site reaction [Recovered/Resolved]

NARRATIVE: CASE EVENT DATE: 20180215
